FAERS Safety Report 4634504-3 (Version None)
Quarter: 2005Q2

REPORT INFORMATION
  Report Type: 
  Country: None (occurrence: None)
  Receive Date: 20050413
  Receipt Date: 20041229
  Transmission Date: 20051028
  Serious: Yes (Hospitalization)
  Sender: FDA-Public Use
  Company Number: DE-MERCK-0412DEU00236

PATIENT
  Age: 47 Year
  Sex: Male
  Weight: 81 kg

DRUGS (3)
  1. VIOXX [Suspect]
     Indication: BACK PAIN
     Route: 048
     Dates: start: 20010101
  2. VIOXX [Suspect]
     Route: 048
     Dates: start: 20030501, end: 20040101
  3. [THERAPY UNSPECIFIED] [Concomitant]
     Route: 065

REACTIONS (4)
  - ANGINA PECTORIS [None]
  - ARTERIAL OCCLUSIVE DISEASE [None]
  - BLUE TOE SYNDROME [None]
  - PRESCRIBED OVERDOSE [None]
